FAERS Safety Report 8778154 (Version 5)
Quarter: 2013Q4

REPORT INFORMATION
  Report Type: Report from Study
  Country: JP (occurrence: JP)
  Receive Date: 20120911
  Receipt Date: 20131219
  Transmission Date: 20140711
  Serious: Yes (Other)
  Sender: FDA-Public Use
  Company Number: JP-VERTEX PHARMACEUTICAL INC.-2012-020733

PATIENT
  Age: 63 Year
  Sex: Female

DRUGS (16)
  1. VX-950 (TELAPREVIR) [Suspect]
     Indication: CHRONIC HEPATITIS C
     Dosage: 2250 MG, QD
     Route: 048
     Dates: start: 20120605, end: 20120608
  2. VX-950 (TELAPREVIR) [Suspect]
     Dosage: 1500 MG, QD
     Route: 048
     Dates: start: 20120609, end: 20120827
  3. RIBAVIRIN [Suspect]
     Indication: CHRONIC HEPATITIS C
     Dosage: 800 MG, QD
     Route: 048
     Dates: start: 20120605, end: 20120625
  4. RIBAVIRIN [Suspect]
     Dosage: 400 MG, QD
     Route: 048
     Dates: start: 20120626, end: 20120702
  5. RIBAVIRIN [Suspect]
     Dosage: 200 MG, QD
     Route: 048
     Dates: start: 20120724, end: 20120924
  6. RIBAVIRIN [Suspect]
     Dosage: 400 MG, QD
     Route: 048
     Dates: start: 20120925, end: 20121008
  7. RIBAVIRIN [Suspect]
     Dosage: 500 MG, QD
     Route: 048
     Dates: start: 20121009, end: 20121015
  8. RIBAVIRIN [Suspect]
     Dosage: 400 MG, QD
     Route: 048
     Dates: start: 20121016, end: 20121119
  9. PEGINTERFERON ALFA-2B [Suspect]
     Indication: CHRONIC HEPATITIS C
     Dosage: 1.5 ?G/KG, QW
     Route: 058
     Dates: start: 20120605, end: 20121113
  10. CONFATANIN [Concomitant]
     Dosage: 180 MG, QD
     Route: 048
     Dates: start: 20120605, end: 20121106
  11. PROMAC [Concomitant]
     Dosage: 150 MG, QD
     Route: 048
     Dates: start: 20120605
  12. VOLTAREN [Concomitant]
     Dosage: UNK, PRN
     Route: 054
     Dates: start: 20120605, end: 20120724
  13. ZYLORIC [Concomitant]
     Dosage: 200 MG, QD
     Route: 048
     Dates: start: 20120626, end: 20120925
  14. PARIET [Concomitant]
     Dosage: 20 MG, QD
     Route: 048
     Dates: start: 20120821, end: 20121120
  15. AZUNOL [Concomitant]
     Dosage: UNK, PRN
     Route: 049
     Dates: start: 20120822, end: 20120911
  16. ACETAMINOPHEN [Concomitant]
     Dosage: UNK, PRN
     Route: 048
     Dates: start: 20121023, end: 20121023

REACTIONS (2)
  - Retinopathy [Recovered/Resolved]
  - Glaucoma [Not Recovered/Not Resolved]
